FAERS Safety Report 8457762-6 (Version None)
Quarter: 2012Q2

REPORT INFORMATION
  Report Type: 
  Country: None (occurrence: None)
  Receive Date: 20120323
  Receipt Date: 20110810
  Transmission Date: 20120825
  Serious: Yes (Other)
  Sender: FDA-Public Use
  Company Number: 163-21880-11081345

PATIENT
  Age: 77 Year
  Sex: Male
  Weight: 109.7705 kg

DRUGS (1)
  1. REVLIMID [Suspect]
     Indication: MYELODYSPLASTIC SYNDROME
     Dosage: 5 MG, QD, PO
     Route: 048
     Dates: start: 20110701

REACTIONS (6)
  - FATIGUE [None]
  - TREMOR [None]
  - RASH ERYTHEMATOUS [None]
  - FULL BLOOD COUNT DECREASED [None]
  - CHILLS [None]
  - URTICARIA [None]
